FAERS Safety Report 15956597 (Version 1)
Quarter: 2019Q1

REPORT INFORMATION
  Report Type: Spontaneous
  Country: US (occurrence: US)
  Receive Date: 20190213
  Receipt Date: 20190213
  Transmission Date: 20190417
  Serious: No
  Sender: FDA-Public Use
  Company Number: None

PATIENT
  Age: 36 Year
  Sex: Female
  Weight: 65.25 kg

DRUGS (1)
  1. METHYPHENIDATE HCL CAM [Suspect]
     Active Substance: METHYLPHENIDATE HYDROCHLORIDE
     Indication: ATTENTION DEFICIT/HYPERACTIVITY DISORDER
     Dosage: ?          QUANTITY:1 TABLET(S);?
     Route: 048

REACTIONS (6)
  - Pruritus [None]
  - Product availability issue [None]
  - Insurance issue [None]
  - Therapeutic response changed [None]
  - Therapeutic response decreased [None]
  - Sneezing [None]

NARRATIVE: CASE EVENT DATE: 20190115
